FAERS Safety Report 10279460 (Version 2)
Quarter: 2014Q3

REPORT INFORMATION
  Report Type: Spontaneous
  Country: IT (occurrence: IT)
  Receive Date: 20140707
  Receipt Date: 20140723
  Transmission Date: 20150326
  Serious: Yes (Other)
  Sender: FDA-Public Use
  Company Number: IT-ACCORD-024647

PATIENT
  Age: 67 Year
  Sex: Female
  Weight: 47 kg

DRUGS (2)
  1. FLUOROURACIL. [Suspect]
     Active Substance: FLUOROURACIL
     Indication: COLON CANCER
     Dosage: LAST DOSE ADMINISTRATION DATE: 20-MAY-2014. ALSO ROUTE OF ADMINISTRATION INTRAVENOUS DRIP
     Route: 042
     Dates: start: 20131130
  2. OXALIPLATIN. [Suspect]
     Active Substance: OXALIPLATIN
     Indication: COLON CANCER
     Dosage: LAST DOSE ADMINISTRATION DATE: 20-MAY-2014.
     Route: 042
     Dates: start: 20131130

REACTIONS (6)
  - Spinal column injury [Not Recovered/Not Resolved]
  - Productive cough [Recovering/Resolving]
  - Paraesthesia [Recovering/Resolving]
  - Hypercreatinaemia [Recovering/Resolving]
  - Bone pain [Not Recovered/Not Resolved]
  - Sciatica [Recovering/Resolving]

NARRATIVE: CASE EVENT DATE: 20140115
